FAERS Safety Report 7285672-9 (Version None)
Quarter: 2011Q1

REPORT INFORMATION
  Report Type: 
  Country: None (occurrence: None)
  Receive Date: 20110210
  Receipt Date: 20110203
  Transmission Date: 20110831
  Serious: Yes (Other)
  Sender: FDA-Public Use
  Company Number: B0689757A

PATIENT
  Sex: Female

DRUGS (5)
  1. TRAZODONE HCL [Suspect]
     Dosage: 100MG PER DAY
     Route: 048
  2. REYATAZ [Suspect]
     Indication: HIV INFECTION
     Dosage: 200MG PER DAY
     Route: 048
  3. WELLBUTRIN [Suspect]
     Dosage: 300MG PER DAY
     Route: 048
  4. ISENTRESS [Suspect]
     Indication: HIV INFECTION
     Dosage: 400MG PER DAY
     Route: 048
  5. TRUVADA [Suspect]
     Indication: HIV INFECTION
     Route: 048

REACTIONS (2)
  - ABORTION SPONTANEOUS [None]
  - DRUG EXPOSURE DURING PREGNANCY [None]
